FAERS Safety Report 20031474 (Version 3)
Quarter: 2022Q1

REPORT INFORMATION
  Report Type: Report from Study
  Country: US (occurrence: US)
  Receive Date: 20211103
  Receipt Date: 20220225
  Transmission Date: 20220424
  Serious: Yes (Other)
  Sender: FDA-Public Use
  Company Number: US-ABBVIE-21K-163-4135869-00

PATIENT
  Sex: Female
  Weight: 88.530 kg

DRUGS (3)
  1. RINVOQ [Suspect]
     Active Substance: UPADACITINIB
     Indication: Rheumatoid arthritis
     Route: 048
     Dates: start: 2020
  2. MODERNA COVID-19 VACCINE [Suspect]
     Active Substance: ELASOMERAN
     Indication: COVID-19 immunisation
     Route: 030
  3. MODERNA COVID-19 VACCINE [Suspect]
     Active Substance: ELASOMERAN
     Route: 030

REACTIONS (6)
  - Thyroid disorder [Recovering/Resolving]
  - Device electrical finding [Recovered/Resolved]
  - COVID-19 [Recovered/Resolved]
  - Allergy to arthropod sting [Recovered/Resolved]
  - Arthropod sting [Recovered/Resolved]
  - Thyroid disorder [Unknown]

NARRATIVE: CASE EVENT DATE: 20200101
